FAERS Safety Report 8581810-6 (Version None)
Quarter: 2012Q3

REPORT INFORMATION
  Report Type: 
  Country: None (occurrence: None)
  Receive Date: 20120809
  Receipt Date: 20120801
  Transmission Date: 20120928
  Serious: Yes (Hospitalization, Other)
  Sender: FDA-Public Use
  Company Number: PHEH2012US015237

PATIENT
  Sex: Female
  Weight: 66.3 kg

DRUGS (31)
  1. PEPCID [Concomitant]
     Dosage: 20 MG, UNK
  2. FAMOTIDINE [Concomitant]
     Dosage: 20 MG, UNK
  3. NITROSTAT [Concomitant]
     Dosage: 0.5 MG, UNK
  4. KLOR-CON [Concomitant]
     Dosage: 20 MEQ, UNK
  5. COMPAZINE [Concomitant]
     Dosage: 5 MG, UNK
  6. NORCO [Concomitant]
     Dosage: UNK UKN, UNK
  7. ATIVAN [Concomitant]
     Dosage: 0.5 MG, UNK
  8. SODIUM CHLORIDE [Concomitant]
     Dosage: 500 ML, Q12H
  9. MAGNESIUM HYDROXIDE TAB [Concomitant]
     Dosage: UNK UKN, UNK
  10. GILENYA [Suspect]
     Indication: MULTIPLE SCLEROSIS
     Dosage: 0.5 MG, QD
     Route: 048
  11. VITAMIN D [Concomitant]
     Dosage: 1000 U, QD
     Route: 048
  12. AMBIEN [Concomitant]
     Dosage: 10 MG, UNK
  13. IMODIUM [Concomitant]
     Dosage: 2 MG, UNK
  14. LYRICA [Concomitant]
     Dosage: 50 MG, TID
     Route: 048
  15. SENOKOT [Concomitant]
     Dosage: UNK UKN, UNK
  16. POTASSIUM CHLORIDE [Concomitant]
     Dosage: 20 MEQ, UNK
  17. K-PHOS NEUTRAL [Concomitant]
     Dosage: UNK UKN, UNK
  18. PERCOCET [Concomitant]
     Dosage: 5-325 MG
  19. MILK OF MAGNESIA TAB [Concomitant]
     Dosage: 2400 MG, UNK
  20. POTASSIUM CHLORIDE [Concomitant]
     Dosage: UNK UKN, UNK
  21. ZOFRAN [Concomitant]
     Dosage: 4 MG, UNK
  22. AMBIEN [Concomitant]
     Dosage: 5 MG, UNK
  23. SODIUM CHLORIDE [Concomitant]
     Dosage: 2 ML, UNK
  24. ASPIRIN [Concomitant]
     Dosage: 81 MG, QD
     Route: 048
  25. PROZAC [Concomitant]
     Dosage: 20 MG, QD
     Route: 048
  26. DULCOLAX [Concomitant]
     Dosage: 10 MG, UNK
  27. ATIVAN [Concomitant]
     Dosage: 0.5 MG, UNK
  28. ZOCOR [Concomitant]
     Dosage: 80 MG, QD
     Route: 048
  29. VALIUM [Concomitant]
     Dosage: 5 MG, UNK
  30. TYLENOL [Concomitant]
     Dosage: 650 MG, UNK
  31. MULTIHANCE [Concomitant]
     Dosage: 13 ML, UNK

REACTIONS (25)
  - MENTAL STATUS CHANGES [None]
  - RENAL FAILURE ACUTE [None]
  - URINARY RETENTION [None]
  - CONVULSION [None]
  - BLOOD URINE PRESENT [None]
  - AGITATION [None]
  - DELIRIUM [None]
  - BLOOD CREATININE INCREASED [None]
  - MENTAL DISORDER [None]
  - IRRITABLE BOWEL SYNDROME [None]
  - BLOOD ALKALINE PHOSPHATASE INCREASED [None]
  - WEIGHT DECREASED [None]
  - BACTERIAL TEST [None]
  - FRUSTRATION [None]
  - HYPERTENSION [None]
  - ABNORMAL BEHAVIOUR [None]
  - PH URINE INCREASED [None]
  - POSTERIOR REVERSIBLE ENCEPHALOPATHY SYNDROME [None]
  - CRYING [None]
  - ANXIETY [None]
  - DECREASED APPETITE [None]
  - DEPRESSION [None]
  - MEMORY IMPAIRMENT [None]
  - HEART RATE INCREASED [None]
  - BLOOD GLUCOSE INCREASED [None]
